FAERS Safety Report 14577735 (Version 1)
Quarter: 2018Q1

REPORT INFORMATION
  Report Type: Report from Study
  Country: ES (occurrence: ES)
  Receive Date: 20180227
  Receipt Date: 20180227
  Transmission Date: 20180509
  Serious: Yes (Hospitalization)
  Sender: FDA-Public Use
  Company Number: ES-PFIZER INC-2018079918

PATIENT
  Age: 77 Year
  Sex: Male

DRUGS (5)
  1. PARACETAMOL [Concomitant]
     Active Substance: ACETAMINOPHEN
     Dosage: 1 G, EVERY 8 HOURS
     Dates: start: 20170317, end: 20170325
  2. PANTOPRAZOL [Concomitant]
     Active Substance: PANTOPRAZOLE SODIUM
     Dosage: 40 MG, EVERY 24H
     Dates: start: 20170317, end: 20170322
  3. ENOXAPARINA [Concomitant]
     Active Substance: ENOXAPARIN
     Dosage: 80 MG, EVERY 24 HOURS
     Dates: start: 20170317, end: 20170322
  4. BISOPROLOL [Concomitant]
     Active Substance: BISOPROLOL
     Dosage: 5 MG, EVERY 24H
     Dates: start: 20170317, end: 20170320
  5. PIPERACILLIN/TAZOBACTAM [Suspect]
     Active Substance: PIPERACILLIN SODIUM\TAZOBACTAM SODIUM
     Indication: SEPSIS
     Dosage: 4 G, EVERY 12 HOURS
     Dates: start: 20170317, end: 20170321

REACTIONS (2)
  - Condition aggravated [Not Recovered/Not Resolved]
  - Acute kidney injury [Not Recovered/Not Resolved]

NARRATIVE: CASE EVENT DATE: 20170319
